FAERS Safety Report 11659628 (Version 2)
Quarter: 2015Q4

REPORT INFORMATION
  Report Type: Report from Study
  Country: BR (occurrence: BR)
  Receive Date: 20151026
  Receipt Date: 20151119
  Transmission Date: 20160304
  Serious: Yes (Other)
  Sender: FDA-Public Use
  Company Number: BR-ASTELLAS-2015US037270

PATIENT
  Age: 0 Day
  Sex: Female
  Weight: 3 kg

DRUGS (1)
  1. TACROLIMUS. [Suspect]
     Active Substance: TACROLIMUS
     Indication: FOETAL EXPOSURE DURING PREGNANCY
     Dosage: UNK UNK, UNKNOWN FREQ.
     Route: 064

REACTIONS (1)
  - B-lymphocyte count decreased [Recovered/Resolved]

NARRATIVE: CASE EVENT DATE: 20110223
